FAERS Safety Report 24872191 (Version 3)
Quarter: 2025Q3

REPORT INFORMATION
  Report Type: Report from Study
  Country: US (occurrence: US)
  Receive Date: 20250122
  Receipt Date: 20250717
  Transmission Date: 20251021
  Serious: Yes (Other)
  Sender: ABBVIE
  Company Number: US-ABBVIE-6095067

PATIENT
  Age: 76 Year
  Sex: Male
  Weight: 67.131 kg

DRUGS (1)
  1. SKYRIZI [Suspect]
     Active Substance: RISANKIZUMAB-RZAA
     Indication: Psoriatic arthropathy
     Route: 058
     Dates: start: 20231112

REACTIONS (7)
  - Limb injury [Recovering/Resolving]
  - Inflammation of wound [Unknown]
  - Road traffic accident [Recovered/Resolved]
  - Concussion [Recovering/Resolving]
  - Joint injury [Unknown]
  - Scratch [Unknown]
  - Wound infection staphylococcal [Recovering/Resolving]

NARRATIVE: CASE EVENT DATE: 20240415
